FAERS Safety Report 8799200 (Version 1)
Quarter: 2012Q4

REPORT INFORMATION
  Report Type: 
  Country: US (occurrence: US)
  Receive Date: 20120920
  Receipt Date: 20120920
  Transmission Date: 20130627
  Serious: No
  Sender: FDA-Public Use
  Company Number: US-ASTRAZENECA-2012SE23860

PATIENT
  Age: 61 Year
  Sex: Female

DRUGS (8)
  1. LISINOPRIL [Suspect]
     Route: 048
  2. ATENOLOL [Suspect]
     Dosage: 50 MG, 1 TAB IN MORNING AND ONE HALF AT NIGHT
     Route: 048
  3. NEXIUM [Suspect]
     Route: 048
  4. ASPIRIN [Suspect]
     Route: 048
  5. KLOR-CON M10 [Suspect]
     Route: 048
  6. HYDROCHLOROTHIAZIDE [Suspect]
     Route: 048
  7. IMODIUM A-D [Suspect]
     Indication: DIARRHOEA
     Dosage: 2 MG, EVERY 4 HOURS AS NEEDED
     Route: 048
  8. WELCHOL [Suspect]
     Dosage: 625 MG, THREE TABLETS TWO TIMES A DAY
     Route: 048

REACTIONS (12)
  - Back pain [Unknown]
  - Impaired work ability [Unknown]
  - Depressed mood [Unknown]
  - Muscle enzyme increased [Unknown]
  - Hypercholesterolaemia [Unknown]
  - Hypertension [Unknown]
  - Blood test abnormal [Unknown]
  - Angioedema [Unknown]
  - Hypersensitivity [Unknown]
  - Gastrooesophageal reflux disease [Unknown]
  - Headache [Unknown]
  - Diarrhoea [Unknown]
